FAERS Safety Report 17437750 (Version 1)
Quarter: 2020Q1

REPORT INFORMATION
  Report Type: Spontaneous
  Country: RU (occurrence: RU)
  Receive Date: 20200219
  Receipt Date: 20200219
  Transmission Date: 20200409
  Serious: Yes (Death, Hospitalization)
  Sender: FDA-Public Use
  Company Number: RU-INCYTE CORPORATION-2020IN001355

PATIENT

DRUGS (10)
  1. CEFOPERAZONE [Concomitant]
     Active Substance: CEFOPERAZONE
     Indication: FEBRILE NEUTROPENIA
     Dosage: 1 G, BID
     Route: 065
  2. CYCLOPHOSPHAN [Suspect]
     Active Substance: CYCLOPHOSPHAMIDE
     Indication: CHRONIC MYELOID LEUKAEMIA
     Dosage: 4500 MG, QD
     Route: 065
  3. CYCLOPHOSPHAN [Suspect]
     Active Substance: CYCLOPHOSPHAMIDE
     Indication: IMMUNOSUPPRESSANT DRUG THERAPY
  4. BUSULFAN. [Suspect]
     Active Substance: BUSULFAN
     Indication: IMMUNOSUPPRESSANT DRUG THERAPY
  5. JAKAVI [Suspect]
     Active Substance: RUXOLITINIB
     Indication: CHRONIC MYELOID LEUKAEMIA
     Dosage: 45 MG, QD
     Route: 065
  6. FLUDARABINE PHOSPHATE. [Suspect]
     Active Substance: FLUDARABINE PHOSPHATE
     Indication: CHRONIC MYELOID LEUKAEMIA
     Dosage: 50 MG PER DAY
     Route: 065
  7. SULBACTAM [Concomitant]
     Active Substance: SULBACTAM
     Indication: FEBRILE NEUTROPENIA
     Dosage: 1 G, BID
     Route: 065
  8. JAKAVI [Suspect]
     Active Substance: RUXOLITINIB
     Indication: IMMUNOSUPPRESSANT DRUG THERAPY
     Dosage: 15 MG, QD (D+5)
     Route: 065
  9. BUSULFAN. [Suspect]
     Active Substance: BUSULFAN
     Indication: CHRONIC MYELOID LEUKAEMIA
     Dosage: 344 MG PER DAY
     Route: 065
  10. FLUDARABINE PHOSPHATE. [Suspect]
     Active Substance: FLUDARABINE PHOSPHATE
     Indication: IMMUNOSUPPRESSANT DRUG THERAPY

REACTIONS (18)
  - Pyrexia [Unknown]
  - Melaena [Unknown]
  - Gastrointestinal haemorrhage [Unknown]
  - Parvovirus B19 infection [Unknown]
  - Epistaxis [Unknown]
  - Anaemia [Unknown]
  - Fatigue [Unknown]
  - Stomatitis [Unknown]
  - Pallor [Unknown]
  - Disorientation [Unknown]
  - Myocarditis [Unknown]
  - Shock haemorrhagic [Fatal]
  - Cytopenia [Unknown]
  - Vomiting [Unknown]
  - Haemoptysis [Unknown]
  - Petechiae [Unknown]
  - Haemorrhage [Unknown]
  - Product use in unapproved indication [Unknown]
